FAERS Safety Report 20420245 (Version 1)
Quarter: 2022Q1

REPORT INFORMATION
  Report Type: Report from Study
  Country: CA (occurrence: CA)
  Receive Date: 20220203
  Receipt Date: 20220203
  Transmission Date: 20220423
  Serious: Yes (Hospitalization)
  Sender: FDA-Public Use
  Company Number: CA-ABBVIE-22K-028-4262226-00

PATIENT
  Age: 74 Year
  Sex: Female

DRUGS (22)
  1. SKYRIZI [Suspect]
     Active Substance: RISANKIZUMAB-RZAA
     Indication: Psoriasis
     Route: 058
     Dates: start: 20190718, end: 20190718
  2. SKYRIZI [Suspect]
     Active Substance: RISANKIZUMAB-RZAA
     Route: 058
     Dates: start: 20190815
  3. SIMVASTATIN [Concomitant]
     Active Substance: SIMVASTATIN
     Indication: Type 2 diabetes mellitus
     Route: 048
     Dates: start: 2000
  4. METFORMIN [Concomitant]
     Active Substance: METFORMIN HYDROCHLORIDE
     Indication: Type 2 diabetes mellitus
     Route: 048
     Dates: start: 2000
  5. SYNTHROID [Concomitant]
     Active Substance: LEVOTHYROXINE SODIUM
     Indication: Hypothyroidism
     Route: 048
     Dates: start: 1987
  6. ATENOLOL [Concomitant]
     Active Substance: ATENOLOL
     Indication: Hypertension
     Route: 048
     Dates: start: 1987
  7. INDAPAMIDE\PERINDOPRIL [Concomitant]
     Active Substance: INDAPAMIDE\PERINDOPRIL
     Indication: Hypertension
     Route: 048
     Dates: start: 1987
  8. INVOKANA [Concomitant]
     Active Substance: CANAGLIFLOZIN
     Indication: Type 2 diabetes mellitus
     Route: 048
     Dates: start: 2000, end: 202004
  9. LYRICA [Concomitant]
     Active Substance: PREGABALIN
     Indication: Intervertebral disc protrusion
     Route: 048
     Dates: start: 2015
  10. GLICLAZIDE [Concomitant]
     Active Substance: GLICLAZIDE
     Indication: Type 2 diabetes mellitus
     Route: 048
     Dates: start: 2000, end: 202004
  11. GLICLAZIDE [Concomitant]
     Active Substance: GLICLAZIDE
     Indication: Type 2 diabetes mellitus
     Route: 048
     Dates: start: 2000
  12. EURO-FER [Concomitant]
     Indication: Anaemia
     Route: 048
     Dates: start: 2015
  13. TRESIBA [Concomitant]
     Active Substance: INSULIN DEGLUDEC
     Indication: Type 2 diabetes mellitus
     Route: 058
     Dates: start: 2016
  14. OZEMPIC [Concomitant]
     Active Substance: SEMAGLUTIDE
     Indication: Type 2 diabetes mellitus
     Route: 058
     Dates: start: 201904
  15. CANNABIDIOL [Concomitant]
     Active Substance: CANNABIDIOL
     Indication: Intervertebral disc protrusion
     Dosage: OIL
     Route: 048
     Dates: start: 201904
  16. SPIRIVA [Concomitant]
     Active Substance: TIOTROPIUM BROMIDE MONOHYDRATE
     Indication: Chronic obstructive pulmonary disease
     Route: 055
     Dates: start: 201903, end: 20200401
  17. ALBUTEROL [Concomitant]
     Active Substance: ALBUTEROL
     Indication: Chronic obstructive pulmonary disease
     Dosage: AS NEEDED
     Route: 055
     Dates: start: 201903, end: 20200401
  18. SYMBICORT [Concomitant]
     Active Substance: BUDESONIDE\FORMOTEROL FUMARATE DIHYDRATE
     Indication: Chronic obstructive pulmonary disease
     Route: 055
     Dates: start: 201903
  19. CALCIUM\VITAMIN D [Concomitant]
     Active Substance: CALCIUM\VITAMIN D
     Indication: Nutritional supplementation
     Route: 048
     Dates: start: 2015
  20. AERIUS [Concomitant]
     Indication: Hypersensitivity
     Route: 048
     Dates: start: 2000
  21. MINERALS\VITAMINS [Concomitant]
     Active Substance: MINERALS\VITAMINS
     Indication: Nutritional supplementation
     Route: 048
     Dates: start: 2015
  22. PANTOPRAZOLE SODIUM [Concomitant]
     Active Substance: PANTOPRAZOLE SODIUM
     Indication: Gastrooesophageal reflux prophylaxis
     Route: 048
     Dates: start: 20200401

REACTIONS (1)
  - Colectomy [Recovered/Resolved]

NARRATIVE: CASE EVENT DATE: 20211030
